FAERS Safety Report 6915432-7 (Version None)
Quarter: 2010Q3

REPORT INFORMATION
  Report Type: 
  Country: None (occurrence: None)
  Receive Date: 20100806
  Receipt Date: 20100806
  Transmission Date: 20110219
  Serious: Yes (Hospitalization)
  Sender: FDA-Public Use
  Company Number: None

PATIENT
  Sex: Male
  Weight: 30.4 kg

DRUGS (4)
  1. MERCAPTOPURINE [Suspect]
     Dosage: 4500 MG
  2. METHOTREXATE [Suspect]
     Dosage: 150 MG
  3. VINCRISTINE SULFATE [Suspect]
     Dosage: 2.8 MG
  4. DEXAMETHASONE [Suspect]
     Dosage: 60 MG

REACTIONS (14)
  - ABDOMINAL DISTENSION [None]
  - ADRENAL INSUFFICIENCY [None]
  - ALANINE AMINOTRANSFERASE INCREASED [None]
  - ASPARTATE AMINOTRANSFERASE INCREASED [None]
  - CELLULITIS [None]
  - GAMMA-GLUTAMYLTRANSFERASE INCREASED [None]
  - HERPES SIMPLEX [None]
  - JAUNDICE [None]
  - NEUTROPENIA [None]
  - PNEUMONITIS [None]
  - PULMONARY OEDEMA [None]
  - RESPIRATORY FAILURE [None]
  - SEPTIC SHOCK [None]
  - SOMNOLENCE [None]
